FAERS Safety Report 14519976 (Version 2)
Quarter: 2018Q1

REPORT INFORMATION
  Report Type: Report from Study
  Country: DE (occurrence: DE)
  Receive Date: 20180212
  Receipt Date: 20180306
  Transmission Date: 20180509
  Serious: Yes (Death, Life-Threatening, Hospitalization)
  Sender: FDA-Public Use
  Company Number: PHHY2018DE023845

PATIENT
  Sex: Male
  Weight: 69 kg

DRUGS (1)
  1. ENTRESTO [Suspect]
     Active Substance: SACUBITRIL\VALSARTAN
     Indication: CARDIAC FAILURE CHRONIC
     Dosage: 1 DF(SACUBITRIL 24 MG/ VALSARTAN 26 MG), BID
     Route: 048
     Dates: start: 20171208

REACTIONS (2)
  - Cardiogenic shock [Fatal]
  - Pneumonia [Fatal]

NARRATIVE: CASE EVENT DATE: 20180105
